FAERS Safety Report 5956392-5 (Version None)
Quarter: 2008Q4

REPORT INFORMATION
  Report Type: 
  Country: None (occurrence: None)
  Receive Date: 20081112
  Receipt Date: 20081101
  Transmission Date: 20090506
  Serious: Yes (Other)
  Sender: FDA-Public Use
  Company Number: 2008SP022348

PATIENT

DRUGS (1)
  1. INTEGRILIN [Suspect]
     Indication: DRUG USE FOR UNKNOWN INDICATION

REACTIONS (1)
  - CORONARY ARTERY BYPASS [None]
